APPROVED DRUG PRODUCT: METAPROTERENOL SULFATE
Active Ingredient: METAPROTERENOL SULFATE
Strength: 10MG
Dosage Form/Route: TABLET;ORAL
Application: A072024 | Product #001
Applicant: STRIDES PHARMA INTERNATIONAL AG
Approved: Jun 28, 1988 | RLD: No | RS: No | Type: DISCN